FAERS Safety Report 4811288-7 (Version None)
Quarter: 2005Q4

REPORT INFORMATION
  Report Type: 
  Country: None (occurrence: None)
  Receive Date: 20051026
  Receipt Date: 20051026
  Transmission Date: 20060501
  Serious: Yes (Life-Threatening, Hospitalization)
  Sender: FDA-Public Use
  Company Number: None

PATIENT
  Age: 56 Year
  Sex: Male

DRUGS (1)
  1. CODEINE 30 MG TABS [Suspect]
     Indication: PHANTOM PAIN
     Dosage: 60 MG PO BID
     Route: 048

REACTIONS (3)
  - PRURITUS [None]
  - RASH [None]
  - URTICARIA [None]
